FAERS Safety Report 6925240-9 (Version None)
Quarter: 2010Q3

REPORT INFORMATION
  Report Type: 
  Country: None (occurrence: None)
  Receive Date: 20100816
  Receipt Date: 20100716
  Transmission Date: 20110219
  Serious: No
  Sender: FDA-Public Use
  Company Number: US-BAYER-201028269NA

PATIENT
  Age: 44 Year
  Sex: Female
  Weight: 79 kg

DRUGS (4)
  1. ULTRAVIST 370 [Suspect]
     Indication: COMPUTERISED TOMOGRAM ABDOMEN
     Dosage: TOTAL DAILY DOSE: 80 ML  UNIT DOSE: 500 ML
     Route: 042
     Dates: start: 20100716, end: 20100716
  2. ULTRAVIST 370 [Suspect]
     Dosage: ULTRAVIST GIVEN AS ORAL CONTRAST
     Route: 048
     Dates: start: 20100716, end: 20100716
  3. PREVACID [Concomitant]
  4. SYNTHROID [Concomitant]

REACTIONS (2)
  - PRURITUS [None]
  - URTICARIA [None]
